FAERS Safety Report 5326559-8 (Version None)
Quarter: 2007Q2

REPORT INFORMATION
  Report Type: 
  Country: None (occurrence: None)
  Receive Date: 20070510
  Receipt Date: 20070430
  Transmission Date: 20071010
  Serious: Yes (Hospitalization)
  Sender: FDA-Public Use
  Company Number: 2007-02141

PATIENT
  Age: 29 Year
  Sex: Female

DRUGS (1)
  1. FERRLECIT [Suspect]
     Indication: IRON DEFICIENCY ANAEMIA
     Dosage: 125 MG/100ML NS SINGLE, NTRAVENOUS
     Route: 042
     Dates: start: 20070426, end: 20070426

REACTIONS (5)
  - ABDOMINAL PAIN [None]
  - BACK PAIN [None]
  - BLOOD PRESSURE INCREASED [None]
  - HEART RATE INCREASED [None]
  - PAINFUL RESPIRATION [None]
